FAERS Safety Report 4267432-6 (Version None)
Quarter: 2004Q1

REPORT INFORMATION
  Report Type: 
  Country: None (occurrence: None)
  Receive Date: 20040109
  Receipt Date: 20040105
  Transmission Date: 20041129
  Serious: Yes (Other)
  Sender: FDA-Public Use
  Company Number: 200410121GDDC

PATIENT
  Age: 55 Year
  Sex: Female

DRUGS (4)
  1. ARAVA [Suspect]
     Indication: RHEUMATOID ARTHRITIS
     Route: 048
     Dates: start: 20011001, end: 20031021
  2. PREDNISOLONE [Concomitant]
     Indication: RHEUMATOID ARTHRITIS
     Route: 048
     Dates: start: 20020201
  3. DICLOFENAC SODIUM [Concomitant]
     Dosage: DOSE: 75 (X2)
     Route: 048
     Dates: start: 19900101
  4. RISEDRONATE SODIUM [Concomitant]
     Indication: OSTEOPOROSIS
     Route: 048
     Dates: start: 20020201

REACTIONS (1)
  - SUPRAVENTRICULAR TACHYCARDIA [None]
